FAERS Safety Report 8595693-1 (Version None)
Quarter: 2012Q3

REPORT INFORMATION
  Report Type: 
  Country: None (occurrence: None)
  Receive Date: 20120815
  Receipt Date: 20120806
  Transmission Date: 20120928
  Serious: Yes (Hospitalization, Other)
  Sender: FDA-Public Use
  Company Number: US-ASTRAZENECA-2012SE06283

PATIENT
  Age: 34 Year
  Sex: Male

DRUGS (4)
  1. NEXIUM [Suspect]
     Indication: DYSPEPSIA
     Route: 048
     Dates: start: 20090101, end: 20120723
  2. ALLEGRA [Concomitant]
  3. ZERTEC [Concomitant]
  4. BYSTOLIC [Concomitant]
     Indication: BLOOD PRESSURE

REACTIONS (5)
  - STEVENS-JOHNSON SYNDROME [None]
  - GINGIVAL PAIN [None]
  - DRUG DOSE OMISSION [None]
  - ORAL MUCOSAL BLISTERING [None]
  - ADVERSE REACTION [None]
